FAERS Safety Report 25710064 (Version 1)
Quarter: 2025Q3

REPORT INFORMATION
  Report Type: Spontaneous
  Country: EU (occurrence: EU)
  Receive Date: 20250821
  Receipt Date: 20250821
  Transmission Date: 20251021
  Serious: Yes (Hospitalization)
  Sender: Haleon PLC
  Company Number: None

PATIENT
  Age: 15 Year
  Sex: Female
  Weight: 55 kg

DRUGS (1)
  1. NICORETTE [Suspect]
     Active Substance: NICOTINE
     Indication: Product used for unknown indication
     Route: 048
     Dates: start: 20250519

REACTIONS (5)
  - Pallor [Recovered/Resolved]
  - Somnolence [Recovered/Resolved]
  - Overdose [Recovered/Resolved]
  - Product appearance confusion [Recovered/Resolved]
  - Dizziness [Recovered/Resolved]

NARRATIVE: CASE EVENT DATE: 20250519
